FAERS Safety Report 11404064 (Version 1)
Quarter: 2015Q3

REPORT INFORMATION
  Report Type: Spontaneous
  Country: US (occurrence: None)
  Receive Date: 20150820
  Receipt Date: 20150820
  Transmission Date: 20151125
  Serious: No
  Sender: FDA-Public Use
  Company Number: None

PATIENT
  Age: 38 Year
  Sex: Female
  Weight: 56.7 kg

DRUGS (2)
  1. DEXTROAMP-AMPHETAMINE ER [Suspect]
     Active Substance: AMPHETAMINE ASPARTATE\AMPHETAMINE SULFATE\DEXTROAMPHETAMINE SACCHARATE\DEXTROAMPHETAMINE SULFATE
     Indication: ATTENTION DEFICIT/HYPERACTIVITY DISORDER
     Route: 048
  2. ADERRAL XR [Concomitant]

REACTIONS (6)
  - Product substitution issue [None]
  - Dyspnoea [None]
  - Nausea [None]
  - Abdominal distension [None]
  - Drug ineffective [None]
  - Fatigue [None]
